FAERS Safety Report 18055817 (Version 2)
Quarter: 2020Q3

REPORT INFORMATION
  Report Type: Spontaneous
  Country: US (occurrence: US)
  Receive Date: 20200722
  Receipt Date: 20200804
  Transmission Date: 20201103
  Serious: Yes (Other)
  Sender: FDA-Public Use
  Company Number: US-INDIVIOR EUROPE LIMITED-INDV-125620-2020

PATIENT
  Age: 48 Year
  Sex: Male

DRUGS (6)
  1. METHADONE [Suspect]
     Active Substance: METHADONE HYDROCHLORIDE
     Indication: PRODUCT USED FOR UNKNOWN INDICATION
     Dosage: UNK
     Route: 065
  2. UNISOM SLEEPGELS NIGHTTIME SLEEP?AID [Suspect]
     Active Substance: DIPHENHYDRAMINE HYDROCHLORIDE
     Indication: PRODUCT USED FOR UNKNOWN INDICATION
     Dosage: UNK
     Route: 065
  3. SUBOXONE [Suspect]
     Active Substance: BUPRENORPHINE HYDROCHLORIDE\NALOXONE HYDROCHLORIDE
     Indication: PAIN
  4. METOPROLOL. [Concomitant]
     Active Substance: METOPROLOL
     Indication: HYPERTENSION
     Dosage: UNK (TABLET)
     Route: 065
     Dates: start: 2005
  5. SUBOXONE [Suspect]
     Active Substance: BUPRENORPHINE HYDROCHLORIDE\NALOXONE HYDROCHLORIDE
     Indication: DRUG DEPENDENCE
     Dosage: 8 MILLIGRAM, BID
     Route: 060
     Dates: start: 2016, end: 2020
  6. HARVONI [Concomitant]
     Active Substance: LEDIPASVIR\SOFOSBUVIR
     Indication: HEPATITIS C
     Dosage: UNK
     Route: 065
     Dates: start: 2017, end: 2017

REACTIONS (14)
  - Drug withdrawal syndrome [Not Recovered/Not Resolved]
  - Weight increased [Unknown]
  - Drug screen false positive [Unknown]
  - Tongue abscess [Not Recovered/Not Resolved]
  - Restless legs syndrome [Not Recovered/Not Resolved]
  - Tongue biting [Not Recovered/Not Resolved]
  - Insomnia [Not Recovered/Not Resolved]
  - Hepatitis C [Unknown]
  - Cellulitis [Not Recovered/Not Resolved]
  - Tooth loss [Recovered/Resolved]
  - Pre-existing condition improved [Recovered/Resolved]
  - Inappropriate schedule of product administration [Recovered/Resolved]
  - Tongue haemorrhage [Recovered/Resolved]
  - Hyperhidrosis [Recovered/Resolved]

NARRATIVE: CASE EVENT DATE: 2016
